FAERS Safety Report 5246324-X (Version None)
Quarter: 2007Q1

REPORT INFORMATION
  Report Type: 
  Country: None (occurrence: None)
  Receive Date: 20061201
  Receipt Date: 20060726
  Transmission Date: 20070707
  Serious: No
  Sender: FDA-Public Use
  Company Number: 2006PV018266

PATIENT
  Age: 67 Year
  Sex: Male

DRUGS (7)
  1. BYETTA [Suspect]
     Indication: WEIGHT DECREASED
     Dosage: SEE IMAGE
     Route: 058
     Dates: start: 20060201, end: 20060301
  2. BYETTA [Suspect]
     Indication: WEIGHT DECREASED
     Dosage: SEE IMAGE
     Route: 058
     Dates: start: 20060301, end: 20060718
  3. NPH [Concomitant]
  4. ACTOS [Concomitant]
  5. STARLIX [Concomitant]
  6. PREDNISONE [Concomitant]
  7. PROGRAF [Concomitant]

REACTIONS (2)
  - BLOOD GLUCOSE INCREASED [None]
  - WEIGHT DECREASED [None]
